FAERS Safety Report 5572530-0 (Version None)
Quarter: 2007Q4

REPORT INFORMATION
  Report Type: 
  Country: None (occurrence: None)
  Receive Date: 20071222
  Receipt Date: 20071217
  Transmission Date: 20080405
  Serious: Yes (Other)
  Sender: FDA-Public Use
  Company Number: US-PFIZER INC-2006002022

PATIENT
  Sex: Female
  Weight: 68 kg

DRUGS (17)
  1. LIPITOR [Suspect]
     Indication: BLOOD CHOLESTEROL INCREASED
  2. NEXIUM [Concomitant]
  3. DIOVAN HCT [Concomitant]
  4. ALL OTHER THERAPEUTIC PRODUCTS [Concomitant]
     Dosage: FREQ:ONCE A MONTH
  5. EVISTA [Concomitant]
  6. ALL OTHER THERAPEUTIC PRODUCTS [Concomitant]
  7. XOPENEX [Concomitant]
     Dosage: FREQ:AS AND WHEN REQUIRED
  8. PULMICORT [Concomitant]
     Dosage: FREQ:AS AND WHEN REQUIRED
  9. ALBUTEROL [Concomitant]
  10. NASONEX [Concomitant]
  11. VITAMIN B-12 [Concomitant]
  12. OMEGA-3 [Concomitant]
  13. ASCORBIC ACID [Concomitant]
  14. CITRACAL + D [Concomitant]
  15. ULTRACET [Concomitant]
  16. PLAVIX [Concomitant]
  17. CLINDAMYCIN HCL [Concomitant]

REACTIONS (9)
  - ARTHRITIS [None]
  - ASTHMA [None]
  - BODY HEIGHT DECREASED [None]
  - CEREBROVASCULAR ACCIDENT [None]
  - FIBROMYALGIA [None]
  - HYPERSENSITIVITY [None]
  - HYPERTENSION [None]
  - OSTEOPOROSIS [None]
  - UNEVALUABLE EVENT [None]
